FAERS Safety Report 7543983-3 (Version None)
Quarter: 2011Q2

REPORT INFORMATION
  Report Type: 
  Country: None (occurrence: None)
  Receive Date: 20110613
  Receipt Date: 20050511
  Transmission Date: 20111010
  Serious: Yes (Other)
  Sender: FDA-Public Use
  Company Number: PHNR2005AU00868

PATIENT
  Sex: Male

DRUGS (1)
  1. CLOZAPINE [Suspect]
     Route: 048
     Dates: start: 20040924

REACTIONS (3)
  - HYPOACUSIS [None]
  - NAUSEA [None]
  - MENIERE'S DISEASE [None]
